FAERS Safety Report 7535652-0 (Version None)
Quarter: 2011Q2

REPORT INFORMATION
  Report Type: 
  Country: None (occurrence: None)
  Receive Date: 20110602
  Receipt Date: 20110523
  Transmission Date: 20111010
  Serious: Yes (Other)
  Sender: FDA-Public Use
  Company Number: 2011SP023950

PATIENT
  Age: 42 Year
  Sex: Female

DRUGS (2)
  1. NASONEX [Suspect]
     Indication: PRODUCT USED FOR UNKNOWN INDICATION
     Dates: start: 20110501
  2. NASONEX [Suspect]
     Indication: PRODUCT USED FOR UNKNOWN INDICATION
     Dates: start: 20110101

REACTIONS (14)
  - VISUAL IMPAIRMENT [None]
  - DEPRESSION [None]
  - WEIGHT DECREASED [None]
  - TREATMENT FAILURE [None]
  - EYE PAIN [None]
  - INSOMNIA [None]
  - MOOD SWINGS [None]
  - PSYCHOTIC DISORDER [None]
  - PANIC ATTACK [None]
  - DECREASED APPETITE [None]
  - WEIGHT [None]
  - THINKING ABNORMAL [None]
  - ANXIETY DISORDER [None]
  - TREMOR [None]
